FAERS Safety Report 5245151-7 (Version None)
Quarter: 2007Q1

REPORT INFORMATION
  Report Type: 
  Country: None (occurrence: None)
  Receive Date: 20070223
  Receipt Date: 20070215
  Transmission Date: 20070707
  Serious: Yes (Hospitalization)
  Sender: FDA-Public Use
  Company Number: CN-BRACCO-BRO-011124

PATIENT
  Age: 67 Year
  Sex: Male

DRUGS (1)
  1. IOPAMIDOL [Suspect]
     Route: 042
     Dates: start: 20070124, end: 20070124

REACTIONS (4)
  - BLISTER [None]
  - EXTRAVASATION [None]
  - INJECTION SITE ULCER [None]
  - SKIN IRRITATION [None]
